FAERS Safety Report 9381748 (Version 1)
Quarter: 2013Q3

REPORT INFORMATION
  Report Type: Spontaneous
  Country: US (occurrence: US)
  Receive Date: 20130703
  Receipt Date: 20130703
  Transmission Date: 20140515
  Serious: No
  Sender: FDA-Public Use
  Company Number: US-ASTRAZENECA-2013SE41853

PATIENT
  Age: 59 Year
  Sex: Female
  Weight: 54.4 kg

DRUGS (4)
  1. CRESTOR [Suspect]
     Route: 048
     Dates: start: 20130427, end: 20130524
  2. CRESTOR [Suspect]
     Route: 048
     Dates: start: 20130528, end: 20130605
  3. ZYRTEC OTC [Concomitant]
     Indication: HYPERSENSITIVITY
     Dosage: PRN
     Route: 048
  4. MULTI-VITAMINS [Concomitant]
     Dosage: DAILY
     Route: 048

REACTIONS (9)
  - Chromaturia [Not Recovered/Not Resolved]
  - Weight increased [Not Recovered/Not Resolved]
  - Malaise [Unknown]
  - Fatigue [Not Recovered/Not Resolved]
  - Abdominal pain upper [Not Recovered/Not Resolved]
  - Headache [Not Recovered/Not Resolved]
  - Nausea [Not Recovered/Not Resolved]
  - Myalgia [Not Recovered/Not Resolved]
  - Drug dose omission [Recovered/Resolved]
